FAERS Safety Report 5162794-X (Version None)
Quarter: 2006Q4

REPORT INFORMATION
  Report Type: 
  Country: None (occurrence: None)
  Receive Date: 20061121
  Receipt Date: 20061109
  Transmission Date: 20070319
  Serious: Yes (Hospitalization)
  Sender: FDA-Public Use
  Company Number: 2005US000867

PATIENT
  Age: 3 Year
  Sex: Male
  Weight: 12.2 kg

DRUGS (12)
  1. PROGRAF [Suspect]
     Indication: PROPHYLAXIS AGAINST TRANSPLANT REJECTION
     Dosage: 8 MG
     Dates: start: 20050220
  2. ZENAPAX [Suspect]
     Indication: PROPHYLAXIS AGAINST TRANSPLANT REJECTION
  3. DITROPAN [Concomitant]
  4. CELLCEPT [Concomitant]
  5. ASPIRIN [Concomitant]
  6. ISRADIPINE [Concomitant]
  7. CIPRO [Concomitant]
  8. MYCELEX [Concomitant]
  9. PEPCID [Concomitant]
  10. MAGNESIUM OXIDE (MAGNESIUM OXIDE) [Concomitant]
  11. GENTAMICIN [Concomitant]
  12. BICITRA             (SODIUM CITRATE, CITRIC ACID) [Concomitant]

REACTIONS (2)
  - ANAPHYLACTIC REACTION [None]
  - PYELONEPHRITIS [None]
